FAERS Safety Report 5428312-3 (Version None)
Quarter: 2007Q3

REPORT INFORMATION
  Report Type: 
  Country: None (occurrence: None)
  Receive Date: 20070823
  Receipt Date: 20070813
  Transmission Date: 20080115
  Serious: Yes (Hospitalization)
  Sender: FDA-Public Use
  Company Number: S07-FRA-03520-01

PATIENT
  Age: 79 Year
  Sex: Female

DRUGS (9)
  1. EBIXA (MEMANTINE HYDROCHLORIDE) [Suspect]
     Indication: DEMENTIA ALZHEIMER'S TYPE
     Dosage: 15 MG QD PO
     Route: 048
     Dates: start: 20070705, end: 20070723
  2. XANAX [Suspect]
     Dosage: 0.5 MG QD PO
     Route: 048
     Dates: start: 20070705, end: 20070723
  3. MIRTAZAPINE [Suspect]
     Dosage: 15 MG QD PO
     Route: 048
     Dates: start: 20070705, end: 20070723
  4. CITALOPRAM HYDROBROMIDE [Concomitant]
  5. EQUANIL [Concomitant]
  6. IMOVANE (ZOPICLONE) [Concomitant]
  7. HALDOL [Concomitant]
  8. TRIMEBUTINE [Concomitant]
  9. EXELON [Concomitant]

REACTIONS (4)
  - ASTHENIA [None]
  - HAEMATURIA [None]
  - HYPERTENSION [None]
  - RENAL FAILURE [None]
